FAERS Safety Report 22668818 (Version 2)
Quarter: 2025Q2

REPORT INFORMATION
  Report Type: Spontaneous
  Country: US (occurrence: US)
  Receive Date: 20230704
  Receipt Date: 20250430
  Transmission Date: 20250716
  Serious: No
  Sender: UNITED THERAPEUTICS
  Company Number: US-UNITED THERAPEUTICS-UNT-2023-005105

PATIENT
  Sex: Female
  Weight: 68.027 kg

DRUGS (4)
  1. REMODULIN [Suspect]
     Active Substance: TREPROSTINIL
     Indication: Pulmonary arterial hypertension
  2. REMODULIN [Suspect]
     Active Substance: TREPROSTINIL
  3. REMODULIN [Suspect]
     Active Substance: TREPROSTINIL
  4. NIFEDIPINE [Concomitant]
     Active Substance: NIFEDIPINE
     Indication: Product used for unknown indication

REACTIONS (13)
  - Needle issue [Unknown]
  - Device issue [Unknown]
  - Device issue [Unknown]
  - Device wireless communication issue [Unknown]
  - Device power source issue [Unknown]
  - Device infusion issue [Unknown]
  - Device occlusion [Unknown]
  - Device infusion issue [Unknown]
  - Device wireless communication issue [Recovered/Resolved]
  - Device leakage [Unknown]
  - Device wireless communication issue [Unknown]
  - Heart rate increased [Unknown]
  - Cough [Unknown]

NARRATIVE: CASE EVENT DATE: 20230101
